FAERS Safety Report 7570967-1 (Version None)
Quarter: 2011Q2

REPORT INFORMATION
  Report Type: 
  Country: None (occurrence: None)
  Receive Date: 20110620
  Receipt Date: 20110607
  Transmission Date: 20111010
  Serious: Yes (Hospitalization, Other)
  Sender: FDA-Public Use
  Company Number: 1000021629

PATIENT
  Age: 81 Year
  Sex: Female

DRUGS (9)
  1. ESCITALOPRAM [Suspect]
     Indication: DEPRESSION
     Dosage: 15 MG (15 MG, 1 IN 1 D), ORAL
     Route: 048
     Dates: end: 20110104
  2. AMITRIPTYLINE HCL [Suspect]
     Indication: DEPRESSION
     Dosage: 15 DROPS (40 MG/ML), ORAL
     Route: 048
     Dates: end: 20110104
  3. DIAMICRON (GLICLAZIDE) (GLICLAZIDE) [Concomitant]
  4. TEMESTA (LORAZEPAM) (LORAZEPAM) [Concomitant]
  5. LOVENOX (ENOXAPARIN SODIUM) (INJECTION) (ENOXAPARIN SODIUM) [Concomitant]
  6. NORFLOXACIN [Suspect]
     Dosage: 800 MG (400 MG, 2 IN 1 D), ORAL
     Route: 048
     Dates: start: 20110101, end: 20110109
  7. DEBRIDAT (TRIMEBUTINE) (TRIMEBUTINE) [Concomitant]
  8. SPASFON (SPASFON /00765801/) (SPASFON /00765801/) [Concomitant]
  9. FORLAX (MACROGOL) (POWDER) (MACROGOL) [Concomitant]

REACTIONS (6)
  - SUBILEUS [None]
  - EPILEPSY [None]
  - NORMOCHROMIC NORMOCYTIC ANAEMIA [None]
  - DYSPNOEA [None]
  - ABDOMINAL PAIN [None]
  - CONVULSION [None]
